FAERS Safety Report 18137674 (Version 1)
Quarter: 2020Q3

REPORT INFORMATION
  Report Type: Spontaneous
  Country: JP (occurrence: JP)
  Receive Date: 20200812
  Receipt Date: 20200812
  Transmission Date: 20201103
  Serious: Yes (Hospitalization)
  Sender: FDA-Public Use
  Company Number: JP-TEVA-2020-JP-1812467

PATIENT
  Age: 63 Year
  Sex: Male

DRUGS (11)
  1. FOLINIC ACID [Suspect]
     Active Substance: LEUCOVORIN
     Indication: COLORECTAL CANCER METASTATIC
     Dosage: FIRST?LINE THERAPY; 13 CYCLES IN FOLFOX REGIMEN
     Route: 065
  2. OXALIPLATIN. [Suspect]
     Active Substance: OXALIPLATIN
     Indication: COLORECTAL CANCER METASTATIC
     Dosage: FIRST?LINE THERAPY; 13 CYCLES IN FOLFOX REGIMEN
     Route: 065
  3. SPIRONOLACTONE. [Suspect]
     Active Substance: SPIRONOLACTONE
     Indication: PORTAL HYPERTENSION
     Route: 065
  4. FLUOROURACIL. [Suspect]
     Active Substance: FLUOROURACIL
     Indication: COLORECTAL CANCER METASTATIC
     Route: 065
  5. FUROSEMIDE. [Suspect]
     Active Substance: FUROSEMIDE
     Indication: PORTAL HYPERTENSION
     Route: 065
  6. BEVACIZUMAB. [Suspect]
     Active Substance: BEVACIZUMAB
     Indication: COLORECTAL CANCER METASTATIC
     Dosage: FIRST?LINE THERAPY; 13 CYCLES WITH FOLFOX REGIMEN
     Route: 065
  7. ALBUMIN [Suspect]
     Active Substance: ALBUMIN HUMAN
     Indication: FLUID RETENTION
     Route: 065
  8. BEVACIZUMAB. [Suspect]
     Active Substance: BEVACIZUMAB
     Dosage: SECOND?LINE THERAPY WITH FOLFIRI
     Route: 065
  9. IIRINOTECAN [Concomitant]
     Indication: COLORECTAL CANCER METASTATIC
     Dosage: SECOND?LINE THERAPY WITH FOLFIRI AND THIRD?LINE THERAPY ALONG WITH CETUXIMAB
     Route: 065
  10. FOLINIC ACID [Suspect]
     Active Substance: LEUCOVORIN
     Indication: COLORECTAL CANCER METASTATIC
     Dosage: SECOND?LINE THERAPY WITH FOLFIRI
     Route: 065
  11. CETUXIMAB. [Concomitant]
     Active Substance: CETUXIMAB
     Indication: COLORECTAL CANCER METASTATIC
     Dosage: THIRD?LINE THERAPY
     Route: 065

REACTIONS (12)
  - Pleural effusion [Recovered/Resolved]
  - Haematemesis [Recovered/Resolved]
  - Oesophageal varices haemorrhage [Recovered/Resolved]
  - Melaena [Recovered/Resolved]
  - Portal hypertensive gastropathy [Recovered/Resolved]
  - Portal hypertension [Recovered/Resolved]
  - Oedema [Recovered/Resolved]
  - Ascites [Recovered/Resolved]
  - Splenomegaly [Recovered/Resolved]
  - Dyspnoea [Recovered/Resolved]
  - Drug ineffective [Unknown]
  - Venoocclusive liver disease [Recovered/Resolved]
